FAERS Safety Report 18491891 (Version 2)
Quarter: 2021Q1

REPORT INFORMATION
  Report Type: Spontaneous
  Country: US (occurrence: US)
  Receive Date: 20201111
  Receipt Date: 20210104
  Transmission Date: 20210419
  Serious: Yes (Death, Hospitalization)
  Sender: FDA-Public Use
  Company Number: US-TEVA-2020-US-1846449

PATIENT
  Age: 33 Year
  Sex: Female

DRUGS (2)
  1. PACLITAXEL. [Suspect]
     Active Substance: PACLITAXEL
     Indication: INVASIVE DUCTAL BREAST CARCINOMA
     Dosage: RECEIVED ONE DOSE
     Route: 065
  2. ALTEPLASE. [Suspect]
     Active Substance: ALTEPLASE
     Indication: EMBOLISM
     Route: 065

REACTIONS (1)
  - Drug ineffective [Fatal]
